FAERS Safety Report 6983806-4 (Version None)
Quarter: 2010Q3

REPORT INFORMATION
  Report Type: 
  Country: None (occurrence: None)
  Receive Date: 20100914
  Receipt Date: 20090216
  Transmission Date: 20110219
  Serious: No
  Sender: FDA-Public Use
  Company Number: US-WYE-H08280509

PATIENT
  Age: 88 Year
  Sex: Female
  Weight: 43.13 kg

DRUGS (1)
  1. ADVIL LIQUI-GELS [Suspect]
     Indication: ANALGESIC THERAPY
     Dosage: 1 GEL CAPLET X 2
     Route: 048
     Dates: start: 20090214, end: 20090215

REACTIONS (2)
  - CONDITION AGGRAVATED [None]
  - TREMOR [None]
